FAERS Safety Report 9708530 (Version 2)
Quarter: 2014Q1

REPORT INFORMATION
  Report Type: Spontaneous
  Country: US (occurrence: US)
  Receive Date: 20131125
  Receipt Date: 20140106
  Transmission Date: 20141002
  Serious: Yes (Hospitalization, Other)
  Sender: FDA-Public Use
  Company Number: US-CELGENEUS-163-POMAL-13113214

PATIENT
  Age: 48 Year
  Sex: Male

DRUGS (11)
  1. POMALYST [Suspect]
     Indication: PLASMA CELL MYELOMA
     Dosage: 4 MILLIGRAM
     Route: 048
     Dates: start: 20131028, end: 20131106
  2. POMALYST [Suspect]
     Dosage: 2 MILLIGRAM
     Route: 048
     Dates: start: 2013
  3. OXYCODONE [Concomitant]
     Indication: PRODUCT USED FOR UNKNOWN INDICATION
     Route: 065
  4. OXYCONTIN [Concomitant]
     Indication: PRODUCT USED FOR UNKNOWN INDICATION
     Route: 065
  5. VALIUM [Concomitant]
     Indication: ANXIETY
     Route: 065
  6. VALIUM [Concomitant]
     Indication: MUSCLE SPASMS
  7. XANAX [Concomitant]
     Indication: ANXIETY
     Route: 065
  8. ONDANSETRON [Concomitant]
     Indication: NAUSEA
     Route: 065
  9. DILAUDID [Concomitant]
     Indication: BREAKTHROUGH PAIN
     Route: 065
  10. VALTREX [Concomitant]
     Indication: PRODUCT USED FOR UNKNOWN INDICATION
     Route: 065
  11. ZANTAC [Concomitant]
     Indication: PRODUCT USED FOR UNKNOWN INDICATION
     Route: 065

REACTIONS (5)
  - Hallucination [Unknown]
  - Feeling abnormal [Unknown]
  - Neutropenia [Unknown]
  - Tremor [Not Recovered/Not Resolved]
  - Red blood cell count decreased [Unknown]
